FAERS Safety Report 8625493-5 (Version None)
Quarter: 2012Q3

REPORT INFORMATION
  Report Type: 
  Country: None (occurrence: None)
  Receive Date: 20120827
  Receipt Date: 20120817
  Transmission Date: 20120928
  Serious: Yes (Death)
  Sender: FDA-Public Use
  Company Number: US-ROCHE-1065826

PATIENT
  Sex: Male
  Weight: 101.7 kg

DRUGS (4)
  1. XELODA [Suspect]
  2. PROCHLORPERAZINE [Concomitant]
     Indication: NAUSEA
     Route: 048
  3. XELODA [Suspect]
     Indication: BILE DUCT CANCER
     Route: 048
     Dates: start: 20120206
  4. PROCHLORPERAZINE [Concomitant]
     Indication: VOMITING

REACTIONS (3)
  - FATIGUE [None]
  - VOMITING [None]
  - DEATH [None]
